FAERS Safety Report 21706862 (Version 3)
Quarter: 2023Q1

REPORT INFORMATION
  Report Type: Report from Study
  Country: CN (occurrence: None)
  Receive Date: 20221209
  Receipt Date: 20230125
  Transmission Date: 20230418
  Serious: Yes (Hospitalization)
  Sender: FDA-Public Use
  Company Number: CN-ROCHE-3231316

PATIENT
  Age: 51 Year
  Sex: Female
  Weight: 51 kg

DRUGS (8)
  1. PERTUZUMAB [Suspect]
     Active Substance: PERTUZUMAB
     Indication: Breast cancer metastatic
     Dosage: 420 MG LOADING DOSE
     Route: 041
     Dates: start: 20220624
  2. PERTUZUMAB [Suspect]
     Active Substance: PERTUZUMAB
     Dosage: (840 MG FOR FIRST DOSE)
     Route: 041
     Dates: start: 20220624
  3. CEFTIZOXIME SODIUM [Concomitant]
     Active Substance: CEFTIZOXIME SODIUM
     Route: 041
     Dates: start: 20221112, end: 20221118
  4. COMPOUND GLYCYRRHIZA ORAL SOLUTION [Concomitant]
     Route: 048
     Dates: start: 20221112, end: 20221118
  5. KETOTIFEN FUMARATE [Concomitant]
     Active Substance: KETOTIFEN FUMARATE
     Route: 048
     Dates: start: 20221112
  6. MONTELUKAST SODIUM [Concomitant]
     Active Substance: MONTELUKAST SODIUM
     Route: 048
     Dates: start: 20221113, end: 20221121
  7. PENTOXYVERINE CITRATE [Concomitant]
     Active Substance: PENTOXYVERINE CITRATE
     Route: 048
     Dates: start: 20221113, end: 20221118
  8. CEFIXIME [Concomitant]
     Active Substance: CEFIXIME
     Route: 048
     Dates: start: 20221119

REACTIONS (1)
  - Bronchitis [Recovered/Resolved]

NARRATIVE: CASE EVENT DATE: 20221110
